FAERS Safety Report 11225987 (Version 2)
Quarter: 2016Q3

REPORT INFORMATION
  Report Type: Report from Study
  Country: US (occurrence: US)
  Receive Date: 20150629
  Receipt Date: 20160701
  Transmission Date: 20161109
  Serious: Yes (Hospitalization)
  Sender: FDA-Public Use
  Company Number: PHEH2015US012252

PATIENT
  Sex: Female

DRUGS (5)
  1. TOBI PODHALER [Suspect]
     Active Substance: TOBRAMYCIN
     Indication: CYSTIC FIBROSIS
     Dosage: 28 MG, BID
     Route: 055
     Dates: start: 20131001, end: 20141112
  2. TOBI PODHALER [Suspect]
     Active Substance: TOBRAMYCIN
     Indication: ASTHMA
  3. TOBI PODHALER [Suspect]
     Active Substance: TOBRAMYCIN
     Indication: PSEUDOMONAS INFECTION
  4. TOBI PODHALER [Suspect]
     Active Substance: TOBRAMYCIN
     Indication: BRONCHIECTASIS
  5. PULMOZYME [Suspect]
     Active Substance: DORNASE ALFA
     Indication: PRODUCT USED FOR UNKNOWN INDICATION
     Route: 065

REACTIONS (3)
  - Cystic fibrosis [Unknown]
  - Condition aggravated [Unknown]
  - Lung disorder [Unknown]
